FAERS Safety Report 6255354-0 (Version None)
Quarter: 2009Q3

REPORT INFORMATION
  Report Type: 
  Country: None (occurrence: None)
  Receive Date: 20090702
  Receipt Date: 20090623
  Transmission Date: 20100115
  Serious: Yes (Hospitalization)
  Sender: FDA-Public Use
  Company Number: AR-AMGEN-US353560

PATIENT
  Sex: Female

DRUGS (4)
  1. ENBREL [Suspect]
     Indication: RHEUMATOID ARTHRITIS
     Route: 058
     Dates: start: 20060815, end: 20090501
  2. LOTRIAL [Concomitant]
     Indication: HYPERTENSION
  3. OMEPRAZOLE [Concomitant]
     Indication: PROPHYLAXIS AGAINST GASTROINTESTINAL ULCER
  4. DELTISONA B [Concomitant]
     Indication: RHEUMATOID ARTHRITIS

REACTIONS (5)
  - ARTHRITIS INFECTIVE [None]
  - FISTULA [None]
  - INFLUENZA [None]
  - KNEE ARTHROPLASTY [None]
  - PNEUMONIA [None]
